FAERS Safety Report 8565278 (Version 2)
Quarter: 2013Q3

REPORT INFORMATION
  Report Type: Spontaneous
  Country: US (occurrence: US)
  Receive Date: 20120516
  Receipt Date: 20130809
  Transmission Date: 20140515
  Serious: Yes (Hospitalization)
  Sender: FDA-Public Use
  Company Number: US-BAYER-2012-046250

PATIENT
  Age: 30 Year
  Sex: Female

DRUGS (7)
  1. YAZ [Suspect]
  2. YASMIN [Suspect]
  3. IRON [FERROUS SULFATE] [Concomitant]
  4. COLACE [Concomitant]
     Dosage: 100 MG, BID
     Route: 048
  5. OMEPRAZOLE [Concomitant]
     Dosage: 20 MG, BID
     Route: 048
  6. FERROUS SULFATE [Concomitant]
     Dosage: 325 MG, BID
     Route: 048
  7. DILAUDID [Concomitant]
     Dosage: 2 MG, Q4HR
     Route: 048

REACTIONS (5)
  - Pulmonary embolism [None]
  - Injury [None]
  - Quality of life decreased [None]
  - Anxiety [None]
  - Anhedonia [None]
